FAERS Safety Report 8935538 (Version 2)
Quarter: 2013Q3

REPORT INFORMATION
  Report Type: Report from Study
  Country: AU (occurrence: AU)
  Receive Date: 20121130
  Receipt Date: 20130812
  Transmission Date: 20140515
  Serious: Yes (Life-Threatening, Hospitalization, Disabling)
  Sender: FDA-Public Use
  Company Number: PHHY2012AU108686

PATIENT
  Age: 48 Year
  Sex: Male

DRUGS (6)
  1. CLOZARIL [Suspect]
     Indication: SCHIZOPHRENIA
     Dosage: UNK
     Route: 048
     Dates: start: 20120919
  2. CLOZARIL [Suspect]
     Dosage: TITRATING REGIMEN OF MAXIMUM OF 175 MG, UNK
     Route: 048
     Dates: end: 20121005
  3. RAMIPRIL [Concomitant]
     Dosage: 1.25 MG, MANE
     Route: 048
     Dates: start: 2012
  4. OMEPRAZOLE [Concomitant]
     Dosage: 20 MG, MANE
     Route: 048
     Dates: start: 2012
  5. ATORVASTATIN [Concomitant]
     Dosage: 80 MG, NOCTE
     Route: 048
     Dates: start: 2010
  6. METOPROLOL [Concomitant]
     Dosage: 12.5 MG, BID
     Route: 048
     Dates: start: 2010

REACTIONS (10)
  - Dilatation ventricular [Unknown]
  - Ventricular internal diameter abnormal [Unknown]
  - Ejection fraction decreased [Unknown]
  - Purulent pericarditis [Recovered/Resolved with Sequelae]
  - Pleural effusion [Recovered/Resolved with Sequelae]
  - Wound infection [Recovered/Resolved with Sequelae]
  - Sepsis [Recovered/Resolved with Sequelae]
  - Acute myocardial infarction [Recovered/Resolved with Sequelae]
  - Malaise [Recovered/Resolved with Sequelae]
  - Troponin I increased [Unknown]
